FAERS Safety Report 21227696 (Version 1)
Quarter: 2022Q3

REPORT INFORMATION
  Report Type: Spontaneous
  Country: GB (occurrence: GB)
  Receive Date: 20220818
  Receipt Date: 20220818
  Transmission Date: 20221027
  Serious: Yes (Other)
  Sender: FDA-Public Use
  Company Number: GB-MHRA-MED-202208152216249080-BPZGN

PATIENT
  Sex: Male

DRUGS (1)
  1. MONTELUKAST [Suspect]
     Active Substance: MONTELUKAST SODIUM
     Indication: Asthma exercise induced
     Dosage: 4 MILLIGRAM, QD, 4MG ONCE A DAY BEFORE BED GRANULES
     Route: 065
     Dates: start: 20220729, end: 20220810

REACTIONS (3)
  - Hallucination [Unknown]
  - Psychomotor hyperactivity [Unknown]
  - Nightmare [Unknown]

NARRATIVE: CASE EVENT DATE: 20220806
